FAERS Safety Report 9375143 (Version 1)
Quarter: 2013Q2

REPORT INFORMATION
  Report Type: Spontaneous
  Country: PT (occurrence: PT)
  Receive Date: 20130628
  Receipt Date: 20130628
  Transmission Date: 20140414
  Serious: Yes (Hospitalization, Other)
  Sender: FDA-Public Use
  Company Number: PT-009507513-1306PRT011464

PATIENT
  Age: 30 Year
  Sex: Female

DRUGS (1)
  1. IMPLANON NXT [Suspect]
     Indication: CONTRACEPTION
     Dosage: UNK
     Route: 058
     Dates: start: 20120611, end: 20130408

REACTIONS (4)
  - Convulsion [Recovering/Resolving]
  - Epilepsy [Recovering/Resolving]
  - Dysarthria [Recovering/Resolving]
  - Speech disorder [Unknown]
